FAERS Safety Report 8891531 (Version 1)
Quarter: 2012Q4

REPORT INFORMATION
  Report Type: 
  Country: US (occurrence: US)
  Receive Date: 20121107
  Receipt Date: 20121107
  Transmission Date: 20130627
  Serious: No
  Sender: FDA-Public Use
  Company Number: US-AMGEN-USASP2011056027

PATIENT
  Age: 49 Year
  Sex: Male
  Weight: 90.7 kg

DRUGS (9)
  1. ENBREL [Suspect]
     Indication: PRODUCT USED FOR UNKNOWN INDICATION
     Dosage: 50 mg, 2 times/wk
  2. TRICOR                             /00090101/ [Concomitant]
  3. OMEPRAZOLE [Concomitant]
  4. GLIMEPIRIDE [Concomitant]
  5. CLOBETASOL 0.05% [Concomitant]
  6. ALLOPURINOL [Concomitant]
  7. GLUMETZA [Concomitant]
  8. BENICAR [Concomitant]
  9. AZITHROMYCIN [Concomitant]

REACTIONS (2)
  - Dermatitis [Unknown]
  - Upper respiratory tract infection [Unknown]
